FAERS Safety Report 11152455 (Version 1)
Quarter: 2015Q2

REPORT INFORMATION
  Report Type: Spontaneous
  Country: IT (occurrence: IT)
  Receive Date: 20150601
  Receipt Date: 20150601
  Transmission Date: 20150821
  Serious: Yes (Life-Threatening, Other)
  Sender: FDA-Public Use
  Company Number: IT-GLAXOSMITHKLINE INC.-IT2015GSK071831

PATIENT
  Sex: Female

DRUGS (8)
  1. PROZAC [Suspect]
     Active Substance: FLUOXETINE HYDROCHLORIDE
     Indication: PRODUCT USED FOR UNKNOWN INDICATION
     Dosage: 280 MG, SINGLE
     Route: 048
     Dates: start: 20150512, end: 20150512
  2. SAMYR [Concomitant]
     Active Substance: METHIONINE
     Dosage: UNK
     Route: 030
  3. TORVAST [Suspect]
     Active Substance: ATORVASTATIN
     Indication: PRODUCT USED FOR UNKNOWN INDICATION
     Dosage: 300 MG, SINGLE
     Route: 048
     Dates: start: 20150512, end: 20150512
  4. LAMICTAL [Suspect]
     Active Substance: LAMOTRIGINE
     Indication: PRODUCT USED FOR UNKNOWN INDICATION
     Dosage: 4200 MG, SINGLE
     Route: 048
     Dates: start: 20150512, end: 20150512
  5. SURMONTIL [Suspect]
     Active Substance: TRIMIPRAMINE MALEATE
     Indication: PRODUCT USED FOR UNKNOWN INDICATION
     Dosage: 650 MG, SINGLE
     Route: 048
     Dates: start: 20150512, end: 20150512
  6. XANAX [Concomitant]
     Active Substance: ALPRAZOLAM
  7. LOBIVON [Suspect]
     Active Substance: NEBIVOLOL HYDROCHLORIDE
     Indication: PRODUCT USED FOR UNKNOWN INDICATION
     Dosage: 70 MG, SINGLE
     Route: 048
     Dates: start: 20150512, end: 20150512
  8. NORITREN [Suspect]
     Active Substance: NORTRIPTYLINE HYDROCHLORIDE
     Indication: PRODUCT USED FOR UNKNOWN INDICATION
     Dosage: 750 MG, SINGLE
     Route: 048
     Dates: start: 20150512, end: 20150512

REACTIONS (5)
  - Suicide attempt [Recovering/Resolving]
  - Miosis [Recovering/Resolving]
  - Overdose [Recovering/Resolving]
  - Traumatic coma [Recovering/Resolving]
  - Hypotension [Recovering/Resolving]
